FAERS Safety Report 24173159 (Version 2)
Quarter: 2024Q3

REPORT INFORMATION
  Report Type: Spontaneous
  Country: DE (occurrence: DE)
  Receive Date: 20240805
  Receipt Date: 20240809
  Transmission Date: 20241016
  Serious: Yes (Death, Life-Threatening, Hospitalization, Other)
  Sender: PFIZER
  Company Number: DE-MENARINI-DE-MEN-107466

PATIENT
  Age: 70 Year
  Sex: Female

DRUGS (6)
  1. METHOTREXATE SODIUM [Suspect]
     Active Substance: METHOTREXATE SODIUM
     Indication: Rheumatoid arthritis
     Dosage: UNK
     Dates: start: 2010
  2. METHOTREXATE SODIUM [Suspect]
     Active Substance: METHOTREXATE SODIUM
     Indication: Chronic idiopathic pain syndrome
  3. METAMIZOLE [Suspect]
     Active Substance: METAMIZOLE
     Indication: Rheumatoid arthritis
     Dosage: 1 G, 3X/DAY (1 G, FREQ:8 H)
     Dates: start: 2010
  4. METAMIZOLE [Suspect]
     Active Substance: METAMIZOLE
     Indication: Chronic idiopathic pain syndrome
  5. PREDNISOLONE [Concomitant]
     Active Substance: PREDNISOLONE
     Indication: Rheumatoid arthritis
     Dosage: UNK
     Dates: start: 2010
  6. PREDNISOLONE [Concomitant]
     Active Substance: PREDNISOLONE
     Indication: Chronic idiopathic pain syndrome

REACTIONS (3)
  - Agranulocytosis [Fatal]
  - Tachycardia [Fatal]
  - Sepsis [Fatal]
